FAERS Safety Report 9370352 (Version 3)
Quarter: 2013Q3

REPORT INFORMATION
  Report Type: Report from Study
  Country: CA (occurrence: CA)
  Receive Date: 20130626
  Receipt Date: 20130801
  Transmission Date: 20140515
  Serious: Yes (Hospitalization)
  Sender: FDA-Public Use
  Company Number: CA-JNJFOC-20130612734

PATIENT
  Age: 34 Year
  Sex: Male
  Weight: 84 kg

DRUGS (2)
  1. REMICADE [Suspect]
     Indication: CROHN^S DISEASE
     Dosage: SECOND LOADIND DOSE
     Route: 042
     Dates: start: 20130618, end: 20130627
  2. REMICADE [Suspect]
     Indication: CROHN^S DISEASE
     Dosage: 0, 2, 6 WEEKS INDUCTION DOSES THEN EVERY 8 WEEKS
     Route: 042
     Dates: start: 20130604

REACTIONS (4)
  - Arthralgia [Recovering/Resolving]
  - Infusion related reaction [Recovered/Resolved]
  - Chest discomfort [Recovered/Resolved]
  - Adverse event [Unknown]
